FAERS Safety Report 11109986 (Version 2)
Quarter: 2015Q2

REPORT INFORMATION
  Report Type: Report from Study
  Country: CH (occurrence: CH)
  Receive Date: 20150513
  Receipt Date: 20150526
  Transmission Date: 20150821
  Serious: Yes (Death)
  Sender: FDA-Public Use
  Company Number: CH-ROCHE-1576671

PATIENT

DRUGS (3)
  1. HEPARIN [Suspect]
     Active Substance: HEPARIN SODIUM
     Dosage: CONTINUOUS INFUSION TO MAINTAIN AN APTT RATIO OF 1.5 - 2.5
     Route: 042
  2. HEPARIN [Suspect]
     Active Substance: HEPARIN SODIUM
     Indication: PULMONARY EMBOLISM
     Dosage: BOLUS OF 80 U/KG
     Route: 040
  3. ALTEPLASE [Suspect]
     Active Substance: ALTEPLASE
     Indication: PULMONARY EMBOLISM
     Dosage: BOLUS OF UP TO 5 MG, CONTINUOUS INFUSION OF 1 MG/H FOR 5 H, FOLLOWED BY CONTINUOUS INFUSION AT 0.5 M
     Route: 013

REACTIONS (2)
  - Cardiogenic shock [Fatal]
  - Product use issue [Unknown]
